FAERS Safety Report 8371769 (Version 2)
Quarter: 2013Q1

REPORT INFORMATION
  Report Type: Report from Study
  Country: US (occurrence: US)
  Receive Date: 20120129
  Receipt Date: 20130129
  Transmission Date: 20140127
  Serious: No
  Sender: FDA-Public Use
  Company Number: US-ABBOTT-11P-163-0859702-00

PATIENT
  Age: 52 Year
  Sex: Female

DRUGS (7)
  1. HUMIRA 40 MG/0.8 ML PEN [Suspect]
     Indication: RHEUMATOID ARTHRITIS
     Route: 058
     Dates: start: 201011, end: 20120421
  2. MOTRIN [Concomitant]
     Indication: PRODUCT USED FOR UNKNOWN INDICATION
     Route: 048
  3. METHOTREXATE [Concomitant]
     Indication: PRODUCT USED FOR UNKNOWN INDICATION
     Route: 048
  4. LEVOTHYROXINE [Concomitant]
     Indication: PRODUCT USED FOR UNKNOWN INDICATION
  5. QVAR [Concomitant]
     Indication: ASTHMA
  6. ALBUTEROL [Concomitant]
     Indication: PRODUCT USED FOR UNKNOWN INDICATION
  7. BENADRYL [Concomitant]
     Indication: PRURITUS

REACTIONS (17)
  - Dysphagia [Not Recovered/Not Resolved]
  - Medication error [Not Recovered/Not Resolved]
  - Drug administration error [None]
  - Choking [Not Recovered/Not Resolved]
  - Vomiting [Not Recovered/Not Resolved]
  - Infection [Not Recovered/Not Resolved]
  - Chapped lips [Not Recovered/Not Resolved]
  - Pain [Not Recovered/Not Resolved]
  - Cheilitis [Not Recovered/Not Resolved]
  - Lip haemorrhage [Not Recovered/Not Resolved]
  - Skin reaction [Not Recovered/Not Resolved]
  - Rash papular [Not Recovered/Not Resolved]
  - Rash pruritic [Not Recovered/Not Resolved]
  - Pain [Not Recovered/Not Resolved]
  - Erythema [Not Recovered/Not Resolved]
  - Pharyngeal erythema [Not Recovered/Not Resolved]
  - Pharyngeal polyp [Not Recovered/Not Resolved]
